FAERS Safety Report 14350010 (Version 4)
Quarter: 2018Q2

REPORT INFORMATION
  Report Type: Spontaneous
  Country: SE (occurrence: SE)
  Receive Date: 20180104
  Receipt Date: 20180629
  Transmission Date: 20180711
  Serious: Yes (Life-Threatening, Hospitalization, Other)
  Sender: FDA-Public Use
  Company Number: SE-AUROBINDO-AUR-APL-2018-000406

PATIENT
  Age: 55 Year
  Sex: Female

DRUGS (30)
  1. VENLAFAXINE [Suspect]
     Active Substance: VENLAFAXINE HYDROCHLORIDE
     Dosage: LARGE AMOUNTS ()
     Route: 048
  2. PARACETAMOL [Suspect]
     Active Substance: ACETAMINOPHEN
     Indication: PRODUCT USED FOR UNKNOWN INDICATION
     Dosage: UNK ()
     Route: 065
  3. ATENOLOL. [Suspect]
     Active Substance: ATENOLOL
     Indication: SUICIDE ATTEMPT
     Dosage: UNK ()
     Route: 065
  4. AMLODIPINE [Suspect]
     Active Substance: AMLODIPINE BESYLATE
     Dosage: LARGE AMOUNTS ()
     Route: 048
  5. VENLAFAXINE [Suspect]
     Active Substance: VENLAFAXINE HYDROCHLORIDE
     Indication: PRODUCT USED FOR UNKNOWN INDICATION
     Dosage: UNK ()
     Route: 065
  6. VENLAFAXINE [Suspect]
     Active Substance: VENLAFAXINE HYDROCHLORIDE
     Indication: SUICIDE ATTEMPT
     Dosage: UNK ()
     Route: 065
  7. PARACETAMOL [Suspect]
     Active Substance: ACETAMINOPHEN
     Indication: SUICIDE ATTEMPT
     Dosage: UNK ()
     Route: 065
  8. PARACETAMOL [Suspect]
     Active Substance: ACETAMINOPHEN
     Dosage: LARGE AMOUNTS ()
     Route: 048
  9. AMLODIPINE [Suspect]
     Active Substance: AMLODIPINE BESYLATE
     Indication: PRODUCT USED FOR UNKNOWN INDICATION
     Dosage: UNK ()
     Route: 065
  10. ATENOLOL. [Suspect]
     Active Substance: ATENOLOL
     Dosage: ()
     Route: 065
  11. ATENOLOL. [Suspect]
     Active Substance: ATENOLOL
     Dosage: LARGE AMOUNTS ()
     Route: 065
  12. ALCOHOL. [Suspect]
     Active Substance: ALCOHOL
     Indication: PRODUCT USED FOR UNKNOWN INDICATION
     Dosage: LARGE AMOUNTS ()
     Route: 065
  13. ALCOHOL. [Suspect]
     Active Substance: ALCOHOL
     Dosage: LARGE AMOUNTS ()
     Route: 065
  14. AMLODIPINE [Suspect]
     Active Substance: AMLODIPINE BESYLATE
     Dosage: ()
     Route: 065
  15. ATENOLOL. [Suspect]
     Active Substance: ATENOLOL
     Dosage: LARGE AMOUNTS ()
     Route: 065
  16. AMLODIPINE [Suspect]
     Active Substance: AMLODIPINE BESYLATE
     Dosage: LARGE AMOUNTS ()
     Route: 048
  17. VENLAFAXINE [Suspect]
     Active Substance: VENLAFAXINE HYDROCHLORIDE
     Dosage: LARGE AMOUNTS ()
     Route: 048
  18. PARACETAMOL [Suspect]
     Active Substance: ACETAMINOPHEN
     Dosage: LARGE AMOUNTS ()
     Route: 048
  19. ATENOLOL. [Suspect]
     Active Substance: ATENOLOL
     Dosage: ()
     Route: 065
  20. ALCOHOL. [Suspect]
     Active Substance: ALCOHOL
     Indication: SUICIDE ATTEMPT
     Dosage: LARGE AMOUNTS ()
     Route: 065
  21. AMLODIPINE [Suspect]
     Active Substance: AMLODIPINE BESYLATE
     Dosage: ()
  22. AMLODIPINE [Suspect]
     Active Substance: AMLODIPINE BESYLATE
     Dosage: UNK ()
     Route: 065
  23. VENLAFAXINE [Suspect]
     Active Substance: VENLAFAXINE HYDROCHLORIDE
     Dosage: ()
     Route: 065
  24. VENLAFAXINE [Suspect]
     Active Substance: VENLAFAXINE HYDROCHLORIDE
     Dosage: LARGE AMOUNTS ()
     Route: 048
  25. PARACETAMOL [Suspect]
     Active Substance: ACETAMINOPHEN
     Dosage: ()
  26. PARACETAMOL [Suspect]
     Active Substance: ACETAMINOPHEN
     Dosage: LARGE AMOUNTS ()
     Route: 048
  27. ATENOLOL. [Suspect]
     Active Substance: ATENOLOL
     Indication: PRODUCT USED FOR UNKNOWN INDICATION
     Dosage: UNK ()
     Route: 065
  28. ATENOLOL. [Suspect]
     Active Substance: ATENOLOL
     Dosage: UNK ()
     Route: 065
  29. ATENOLOL. [Suspect]
     Active Substance: ATENOLOL
     Dosage: LARGE AMOUNTS ()
     Route: 065
  30. PARACETAMOL [Suspect]
     Active Substance: ACETAMINOPHEN
     Dosage: ()
     Route: 065

REACTIONS (12)
  - Blood lactic acid increased [Unknown]
  - Hypokinesia [Recovered/Resolved]
  - Suicide attempt [Recovered/Resolved]
  - Toxicity to various agents [Recovered/Resolved]
  - Ejection fraction decreased [Recovered/Resolved]
  - Shock [Recovering/Resolving]
  - Hypotension [Recovering/Resolving]
  - Left ventricular dysfunction [Recovered/Resolved]
  - Loss of consciousness [Recovered/Resolved]
  - Pneumonia [Recovered/Resolved with Sequelae]
  - Heart rate decreased [Recovering/Resolving]
  - Delirium [Recovered/Resolved with Sequelae]
